FAERS Safety Report 15811012 (Version 4)
Quarter: 2019Q1

REPORT INFORMATION
  Report Type: Spontaneous
  Country: US (occurrence: US)
  Receive Date: 20190111
  Receipt Date: 20190222
  Transmission Date: 20190417
  Serious: Yes (Other)
  Sender: FDA-Public Use
  Company Number: US-CELGENEUS-USA-20190100756

PATIENT
  Sex: Female

DRUGS (1)
  1. OTEZLA [Suspect]
     Active Substance: APREMILAST
     Indication: PSORIASIS
     Dosage: 10-30 MG
     Route: 048
     Dates: start: 20181229

REACTIONS (3)
  - Gallbladder disorder [Unknown]
  - Diarrhoea [Unknown]
  - Nausea [Unknown]
